FAERS Safety Report 8784924 (Version 2)
Quarter: 2012Q4

REPORT INFORMATION
  Report Type: Spontaneous
  Country: US (occurrence: None)
  Receive Date: 20120829
  Receipt Date: 20121001
  Transmission Date: 20130627
  Serious: Yes (Life-Threatening, Other)
  Sender: FDA-Public Use
  Company Number: DSA_57989_2012

PATIENT
  Age: 68 Year
  Sex: Female

DRUGS (9)
  1. XENAZINE [Suspect]
     Indication: TARDIVE DYSKINESIA
     Dosage: 12.5 mg, 1/2 tab every evening during week one Oral
     Route: 048
     Dates: start: 20120420
  2. XENAZINE [Suspect]
     Indication: TARDIVE DYSKINESIA
     Dosage: 12.5 mg tab, 1/2 tabs every morning and every during week two Oral
     Route: 048
  3. XENAZINE [Suspect]
     Indication: TARDIVE DYSKINESIA
     Dosage: 12.5 mg tab, 1/2 tabs every morning, noon, and evening during week 3. Oral)
     Route: 048
     Dates: end: 201207
  4. XENAZINE [Suspect]
     Indication: TARDIVE DYSKINESIA
  5. XENAZINE [Suspect]
     Indication: TARDIVE DYSKINESIA
  6. XENAZINE [Suspect]
     Indication: TARDIVE DYSKINESIA
  7. MULTIVITAMIN /02358601 [Concomitant]
  8. VITAMIN-C [Concomitant]
  9. AMITRIPTYLINE [Concomitant]

REACTIONS (3)
  - Suicidal ideation [None]
  - Depression [None]
  - Somnolence [None]
